FAERS Safety Report 9415810 (Version 2)
Quarter: 2013Q3

REPORT INFORMATION
  Report Type: Spontaneous
  Country: DE (occurrence: DE)
  Receive Date: 20130724
  Receipt Date: 20130726
  Transmission Date: 20140515
  Serious: Yes (Other)
  Sender: FDA-Public Use
  Company Number: DE-009507513-1307DEU011638

PATIENT
  Age: 47 Year
  Sex: Female

DRUGS (1)
  1. FOSAMAX EINMAL W?CHENTLICH 70 MG TABLETTEN [Suspect]
     Indication: OSTEOPOROSIS
     Dosage: 70 MG, QW
     Route: 048
     Dates: start: 201210

REACTIONS (2)
  - Systemic lupus erythematosus [Not Recovered/Not Resolved]
  - Erythema [Unknown]
